FAERS Safety Report 19850243 (Version 1)
Quarter: 2021Q3

REPORT INFORMATION
  Report Type: Spontaneous
  Country: DE (occurrence: DE)
  Receive Date: 20210918
  Receipt Date: 20210918
  Transmission Date: 20211014
  Serious: Yes (Other)
  Sender: FDA-Public Use
  Company Number: DE-AMGEN-DEUSP2021144529

PATIENT
  Sex: Female

DRUGS (1)
  1. ROMOSOZUMAB [Suspect]
     Active Substance: ROMOSOZUMAB
     Indication: OSTEOPOROTIC FRACTURE
     Dosage: 7 MONTHS THERAPY OF STANDARD DOSE
     Route: 065

REACTIONS (2)
  - Breast cancer metastatic [Unknown]
  - Thoracic vertebral fracture [Unknown]
